FAERS Safety Report 18033744 (Version 2)
Quarter: 2020Q3

REPORT INFORMATION
  Report Type: Spontaneous
  Country: US (occurrence: US)
  Receive Date: 20200717
  Receipt Date: 20200717
  Transmission Date: 20201103
  Serious: Yes (Other)
  Sender: FDA-Public Use
  Company Number: US-SHIRE-US202022052

PATIENT

DRUGS (6)
  1. DEXTROAMPHETAMINE [DEXAMFETAMINE] [Concomitant]
     Active Substance: DEXTROAMPHETAMINE
     Indication: ATTENTION DEFICIT HYPERACTIVITY DISORDER
     Route: 065
  2. VYVANSE [Suspect]
     Active Substance: LISDEXAMFETAMINE DIMESYLATE
     Indication: ATTENTION DEFICIT HYPERACTIVITY DISORDER
     Route: 065
  3. CLONOPIN [Concomitant]
     Active Substance: CLONAZEPAM
     Indication: ANXIETY
     Dosage: UNK, AS REQ^D
     Route: 065
  4. LAMOTRIGINE. [Concomitant]
     Active Substance: LAMOTRIGINE
     Indication: MOOD ALTERED
     Route: 065
  5. FOCALIN XR ER [Concomitant]
     Indication: PRODUCT USED FOR UNKNOWN INDICATION
  6. METHAMPHETAMINE [METAMFETAMINE] [Concomitant]
     Active Substance: METHAMPHETAMINE
     Indication: PRODUCT USED FOR UNKNOWN INDICATION

REACTIONS (10)
  - Somnolence [Unknown]
  - Self esteem decreased [Unknown]
  - Inappropriate schedule of product administration [Unknown]
  - Delusion [Unknown]
  - Eating disorder [Unknown]
  - Agitation [Unknown]
  - Stress [Unknown]
  - Drug abuser [Unknown]
  - Mental impairment [Unknown]
  - Depression [Unknown]
